FAERS Safety Report 10450287 (Version 6)
Quarter: 2016Q3

REPORT INFORMATION
  Report Type: Report from Study
  Country: HK (occurrence: HK)
  Receive Date: 20140912
  Receipt Date: 20160801
  Transmission Date: 20161109
  Serious: Yes (Hospitalization)
  Sender: FDA-Public Use
  Company Number: HK-GLAXOSMITHKLINE-Z0022118B

PATIENT
  Age: 42 Year
  Sex: Female
  Weight: 62.7 kg

DRUGS (1)
  1. BELIMUMAB [Suspect]
     Active Substance: BELIMUMAB
     Indication: SYSTEMIC LUPUS ERYTHEMATOSUS
     Dosage: 10 MG/KG, CYC
     Route: 042
     Dates: start: 20140127

REACTIONS (1)
  - Anaemia [Recovered/Resolved]

NARRATIVE: CASE EVENT DATE: 20140910
